FAERS Safety Report 8155635 (Version 3)
Quarter: 2013Q2

REPORT INFORMATION
  Report Type: Spontaneous
  Country: ES (occurrence: ES)
  Receive Date: 20110926
  Receipt Date: 20130517
  Transmission Date: 20140414
  Serious: Yes (Other)
  Sender: FDA-Public Use
  Company Number: ES-JNJFOC-20110906549

PATIENT
  Age: 26 Year
  Sex: Male
  Weight: 76 kg

DRUGS (4)
  1. RISPERDAL CONSTA [Suspect]
     Indication: SCHIZOPHRENIA
     Route: 030
  2. RISPERDAL CONSTA [Suspect]
     Indication: SCHIZOPHRENIA
     Route: 030
     Dates: start: 20110901
  3. RISPERIDONE [Suspect]
     Indication: SCHIZOPHRENIA
     Route: 048
  4. ADIRO [Concomitant]
     Dosage: OCCASIONALLY (ONCE A MONTH)
     Route: 065

REACTIONS (10)
  - Cerebral arteriosclerosis [Unknown]
  - Injury [Not Recovered/Not Resolved]
  - Diaphragmalgia [Unknown]
  - Tongue spasm [Unknown]
  - Extraocular muscle disorder [Unknown]
  - Joint contracture [Not Recovered/Not Resolved]
  - Dyspnoea [Unknown]
  - Sensory disturbance [Unknown]
  - Injection site pain [Recovered/Resolved]
  - Dizziness [Unknown]
